FAERS Safety Report 25248115 (Version 1)
Quarter: 2025Q2

REPORT INFORMATION
  Report Type: Spontaneous
  Country: DE (occurrence: DE)
  Receive Date: 20250429
  Receipt Date: 20250429
  Transmission Date: 20250717
  Serious: Yes (Other)
  Sender: CELLTRION
  Company Number: DE-ABBVIE-5974940

PATIENT

DRUGS (7)
  1. ADALIMUMAB [Suspect]
     Active Substance: ADALIMUMAB
     Indication: Hidradenitis
     Dosage: 40 MG, 1/WEEK
     Route: 058
     Dates: start: 202110
  2. ADALIMUMAB [Suspect]
     Active Substance: ADALIMUMAB
     Indication: Crohn^s disease
  3. USTEKINUMAB [Suspect]
     Active Substance: USTEKINUMAB
     Indication: Product used for unknown indication
     Route: 065
     Dates: start: 202204
  4. ETHINYL ESTRADIOL [Concomitant]
     Active Substance: ETHINYL ESTRADIOL
     Indication: Product used for unknown indication
  5. CIPROFLOXACIN [Concomitant]
     Active Substance: CIPROFLOXACIN
     Indication: Hidradenitis
     Dates: start: 202112
  6. METRONIDAZOLE [Concomitant]
     Active Substance: METRONIDAZOLE
     Indication: Hidradenitis
     Dates: start: 202112
  7. DIENOGEST [Concomitant]
     Active Substance: DIENOGEST
     Indication: Product used for unknown indication

REACTIONS (12)
  - Pelvic neoplasm [Unknown]
  - Proctitis [Unknown]
  - Hidradenitis [Unknown]
  - Gastrointestinal wall thickening [Unknown]
  - Colitis [Unknown]
  - Ascites [Unknown]
  - Fluid retention [Unknown]
  - Ovarian cyst [Unknown]
  - Dermatitis [Unknown]
  - Infection [Unknown]
  - Pain [Unknown]
  - Subcutaneous abscess [Unknown]

NARRATIVE: CASE EVENT DATE: 20211201
